FAERS Safety Report 7278464-8 (Version None)
Quarter: 2011Q1

REPORT INFORMATION
  Report Type: 
  Country: None (occurrence: None)
  Receive Date: 20110207
  Receipt Date: 20110130
  Transmission Date: 20110831
  Serious: Yes (Hospitalization, Other)
  Sender: FDA-Public Use
  Company Number: RU-PFIZER INC-2010117278

PATIENT
  Age: 56 Year
  Sex: Male
  Weight: 96 kg

DRUGS (34)
  1. ATORVASTATIN CALCIUM [Suspect]
  2. PHENAZEPAM [Concomitant]
  3. ISOSORBIDE DINITRATE [Concomitant]
  4. AMIODARONE [Suspect]
  5. BETAXOLOL [Concomitant]
  6. POTASSIUM CHLORIDE [Concomitant]
  7. CLOPIDOGREL [Concomitant]
     Indication: ACUTE CORONARY SYNDROME
     Dosage: UNK
     Dates: end: 20100318
  8. ACETYLSALICYLIC ACID [Concomitant]
     Dosage: UNK
     Dates: start: 20100430
  9. MORPHINE HYDROCHLORIDE [Concomitant]
  10. METOPROLOL [Concomitant]
  11. HYLAK [Concomitant]
     Dosage: UNK
     Dates: start: 20101113, end: 20101113
  12. OMEPRAZOLE [Suspect]
  13. MAGNESIUM SULFATE [Concomitant]
  14. HYDROCHLOROTHIAZIDE [Concomitant]
  15. ACETYLSALICYLIC ACID [Concomitant]
     Dosage: UNK
     Dates: end: 20100308
  16. CAPTOPRIL [Concomitant]
  17. METAMIZOLE SODIUM [Concomitant]
  18. ISOSORBIDE MONONITRATE [Concomitant]
  19. DILTIAZEM [Concomitant]
  20. FUROSEMIDE [Concomitant]
  21. SODIUM CHLORIDE [Concomitant]
  22. SIMVASTATIN [Concomitant]
  23. SPIRONOLACTONE [Concomitant]
  24. TRIMEPERIDINE [Concomitant]
  25. HEPARIN [Concomitant]
  26. BLINDED THERAPY [Suspect]
     Indication: ACUTE CORONARY SYNDROME
     Dosage: 2.5 MG OR 5 MG OR PLACEBO
     Route: 048
     Dates: start: 20100315, end: 20100907
  27. LISINOPRIL [Concomitant]
  28. BISOPROLOL [Concomitant]
  29. GLUCOSE [Concomitant]
  30. CLOPIDOGREL [Concomitant]
     Dosage: UNK
     Dates: start: 20100323, end: 20100331
  31. ENALAPRIL [Concomitant]
  32. PERINDOPRIL [Concomitant]
  33. ACETYLSALICYLIC ACID [Concomitant]
     Indication: ACUTE CORONARY SYNDROME
     Dosage: UNK
     Dates: end: 20100429
  34. MAGNESIUM ASPARTATE [Concomitant]

REACTIONS (4)
  - GASTRITIS EROSIVE [None]
  - PANCREATIC NEOPLASM [None]
  - ALANINE AMINOTRANSFERASE INCREASED [None]
  - JAUNDICE CHOLESTATIC [None]
